FAERS Safety Report 7418132-2 (Version None)
Quarter: 2011Q2

REPORT INFORMATION
  Report Type: 
  Country: None (occurrence: None)
  Receive Date: 20110415
  Receipt Date: 20110414
  Transmission Date: 20111010
  Serious: Yes (Other)
  Sender: FDA-Public Use
  Company Number: FI-PFIZER INC-2011050079

PATIENT
  Age: 82 Year
  Sex: Male

DRUGS (2)
  1. XANOR [Suspect]
     Indication: AEROPHAGIA
     Dosage: 0.5 MG, 2X/DAY
     Route: 048
  2. ATACAND [Concomitant]
     Dosage: UNK

REACTIONS (4)
  - PAPULE [None]
  - PRURITUS [None]
  - DRY SKIN [None]
  - RASH [None]
